FAERS Safety Report 6862247-4 (Version None)
Quarter: 2010Q3

REPORT INFORMATION
  Report Type: 
  Country: None (occurrence: None)
  Receive Date: 20100719
  Receipt Date: 20100702
  Transmission Date: 20110219
  Serious: Yes (Hospitalization, Other)
  Sender: FDA-Public Use
  Company Number: 2010P1000130

PATIENT
  Age: 58 Year
  Sex: Female
  Weight: 53.0709 kg

DRUGS (16)
  1. FENTANYL [Suspect]
     Indication: INTERVERTEBRAL DISC DISORDER
     Dosage: 50 MCG/HR; 1 PATCH Q2D;TDER
     Dates: start: 20080702, end: 20100601
  2. FENTANYL-75 [Suspect]
     Indication: INTERVERTEBRAL DISC DISORDER
     Dosage: 75 MCG/HR; 1 PATCH Q2D;TDER
     Dates: start: 20100610
  3. LYRICA [Concomitant]
  4. AMLODIPINE [Concomitant]
  5. LIPITOR [Concomitant]
  6. FLUTICASONE NASAL SPRAY [Concomitant]
  7. DIOVANHCT (VALSARTAN AND HYDROCHLOROTHIAZIDE) [Concomitant]
  8. LIDODERM PATCHES (LIDOCAINE) [Concomitant]
  9. CYMBALTA [Concomitant]
  10. PIROXICAM [Concomitant]
  11. TWO GENERIC STOOL SOFTENERS [Concomitant]
  12. PROTONIX DR (PANTOPRAZOLE SODIUM) [Concomitant]
  13. ZOFRAN [Concomitant]
  14. PHENERGAN (PROMETHAZINE) [Concomitant]
  15. OMEPRAZOLE [Concomitant]
  16. ASPIRIN [Concomitant]

REACTIONS (11)
  - BLOOD MAGNESIUM DECREASED [None]
  - COLD SWEAT [None]
  - DEHYDRATION [None]
  - DIVERTICULITIS [None]
  - FATIGUE [None]
  - GASTRITIS [None]
  - HYPERHIDROSIS [None]
  - HYPOKALAEMIA [None]
  - HYPOPHAGIA [None]
  - RENAL FAILURE ACUTE [None]
  - WEIGHT DECREASED [None]
